FAERS Safety Report 4338147-0 (Version None)
Quarter: 2004Q2

REPORT INFORMATION
  Report Type: 
  Country: None (occurrence: None)
  Receive Date: 20040412
  Receipt Date: 20040412
  Transmission Date: 20050107
  Serious: Yes (Hospitalization)
  Sender: FDA-Public Use
  Company Number: None

PATIENT
  Sex: Female

DRUGS (15)
  1. ZOMETA [Suspect]
     Indication: RENAL CELL CARCINOMA STAGE UNSPECIFIED
     Dosage: 4MG IV Q 4 WEEKS
     Route: 042
     Dates: start: 20040301
  2. INTERLEUKIN -2- ALDESLEUKIN 22MU VIALS CHIRON [Suspect]
     Indication: RENAL CELL CARCINOMA STAGE UNSPECIFIED
     Dosage: 7 MU/M2 SUBQ DAYS 1-5 8-12
     Route: 058
     Dates: start: 20040301, end: 20040312
  3. INTERLEUKIN -2- ALDESLEUKIN 22MU VIALS CHIRON [Suspect]
  4. LISINOPRIL [Concomitant]
  5. M.V.I. [Concomitant]
  6. CIMETIDINE HCL [Concomitant]
  7. TYLENOL (CAPLET) [Concomitant]
  8. BENADRYL [Concomitant]
  9. LORTAB [Concomitant]
  10. B12 [Concomitant]
  11. ASPIRIN [Concomitant]
  12. PLAVIX [Concomitant]
  13. METOPROLOL [Concomitant]
  14. NEXIUM [Concomitant]
  15. SIMVASTATIN [Concomitant]

REACTIONS (3)
  - CARDIAC DISORDER [None]
  - HAEMATOCRIT DECREASED [None]
  - MYOCARDIAL INFARCTION [None]
